FAERS Safety Report 10977715 (Version 1)
Quarter: 2015Q1

REPORT INFORMATION
  Report Type: Spontaneous
  Country: US (occurrence: None)
  Receive Date: 20150226
  Receipt Date: 20150226
  Transmission Date: 20150721
  Serious: No
  Sender: FDA-Public Use
  Company Number: TPA2009A03394

PATIENT
  Age: 62 Year
  Sex: Male

DRUGS (3)
  1. ULORIC [Suspect]
     Active Substance: FEBUXOSTAT
     Indication: GOUTY TOPHUS
     Dosage: 40MTG, 1/2 TABLET ONCE A DAY, PER ORAL
     Route: 048
     Dates: start: 200909, end: 200909
  2. ULORIC [Suspect]
     Active Substance: FEBUXOSTAT
     Indication: GOUT
     Dosage: 40MTG, 1/2 TABLET ONCE A DAY, PER ORAL
     Route: 048
     Dates: start: 200909, end: 200909
  3. ULORIC [Suspect]
     Active Substance: FEBUXOSTAT
     Indication: HYPERURICAEMIA
     Dosage: 40MTG, 1/2 TABLET ONCE A DAY, PER ORAL
     Route: 048
     Dates: start: 200909, end: 200909

REACTIONS (2)
  - Alanine aminotransferase increased [None]
  - Aspartate aminotransferase increased [None]

NARRATIVE: CASE EVENT DATE: 20091008
